FAERS Safety Report 12798990 (Version 1)
Quarter: 2016Q3

REPORT INFORMATION
  Report Type: Spontaneous
  Country: GB (occurrence: GB)
  Receive Date: 20160930
  Receipt Date: 20160930
  Transmission Date: 20161109
  Serious: Yes (Hospitalization)
  Sender: FDA-Public Use
  Company Number: GB-TEVA-697171ACC

PATIENT
  Age: 16 Year
  Sex: Female
  Weight: 56 kg

DRUGS (5)
  1. NORMAL SALINE [Concomitant]
     Active Substance: SODIUM CHLORIDE
  2. TAZOCIN [Concomitant]
     Active Substance: PIPERACILLIN SODIUM\TAZOBACTAM SODIUM
  3. GELOFUSINE [Concomitant]
     Active Substance: GELATIN\SODIUM CHLORIDE
  4. HYDROCORTISONE. [Concomitant]
     Active Substance: HYDROCORTISONE
     Dosage: 800 MILLIGRAM DAILY;
     Route: 042
  5. ACTAVIS UK PREDNISOLONE [Suspect]
     Active Substance: PREDNISOLONE
     Indication: POLYARTHRITIS
     Dosage: 30 MILLIGRAM DAILY; TAPERED TO 25MG ON THE 04-SEP-2016 AND 5MG ON 05-SEP-2016 AND 06-SEP-2016
     Route: 048
     Dates: start: 20160820, end: 20160907

REACTIONS (3)
  - Irritability [Unknown]
  - Insomnia [Not Recovered/Not Resolved]
  - Delirium [Not Recovered/Not Resolved]

NARRATIVE: CASE EVENT DATE: 20160903
